FAERS Safety Report 13299113 (Version 1)
Quarter: 2017Q1

REPORT INFORMATION
  Report Type: Report from Study
  Country: NL (occurrence: NL)
  Receive Date: 20170306
  Receipt Date: 20170306
  Transmission Date: 20170428
  Serious: Yes (Other)
  Sender: FDA-Public Use
  Company Number: NL-AMGEN-NLDSL2017031268

PATIENT
  Age: 76 Year
  Sex: Male

DRUGS (22)
  1. OXAZEPAM. [Concomitant]
     Active Substance: OXAZEPAM
     Dosage: 10 MG, QD
     Route: 048
     Dates: start: 20161118
  2. SERETIDE [Concomitant]
     Active Substance: FLUTICASONE PROPIONATE\SALMETEROL XINAFOATE
     Dosage: 25/250MCG 120D
     Dates: start: 20100528
  3. MULTERGAN [Concomitant]
     Dosage: 25 MG/ML, QD
     Dates: start: 20170223, end: 20170223
  4. ACETYLSALICYLIC ACID [Concomitant]
     Active Substance: ASPIRIN
     Dosage: 80 MG, QD
     Route: 048
     Dates: start: 20161118
  5. ENALAPRIL MALEATE. [Concomitant]
     Active Substance: ENALAPRIL MALEATE
     Dosage: 5 MG, QD
     Route: 048
     Dates: start: 20161118
  6. MOMETASONE [Concomitant]
     Active Substance: MOMETASONE
     Dosage: 50 MCG, QD
     Route: 045
     Dates: start: 20170223
  7. METOCLOPRAMIDE HCL PCH [Concomitant]
     Dosage: 10 MG, AS NECESSARY
     Route: 048
     Dates: start: 20161024, end: 20170223
  8. SPIRIVA [Concomitant]
     Active Substance: TIOTROPIUM BROMIDE MONOHYDRATE
     Dosage: 18 MCG, UNK
     Route: 045
     Dates: start: 20100528
  9. SALBUTAMOL [Concomitant]
     Active Substance: ALBUTEROL
     Dosage: 1/0.2 MG/ML, QD
     Dates: start: 20170223
  10. MOXIFLOXACIN. [Concomitant]
     Active Substance: MOXIFLOXACIN
     Dosage: 1.6 MG/ML, QD
     Dates: start: 20170222
  11. CALCI CHEW [Concomitant]
     Dosage: 500 MG, QD
     Route: 048
     Dates: start: 20161118
  12. MIRTAZAPINE AUROBINDO [Concomitant]
     Active Substance: MIRTAZAPINE
     Dosage: 30 MG, QD
     Route: 048
     Dates: start: 20161114
  13. PRIMPERAN [Concomitant]
     Active Substance: METOCLOPRAMIDE HYDROCHLORIDE
     Dosage: 10 MG, AS NECESSARY
     Dates: start: 20161024, end: 20170223
  14. CALCIUM CARBONATE W/COLECALCIFEROL [Concomitant]
     Active Substance: CALCIUM CARBONATE\CHOLECALCIFEROL
     Dosage: 1.25G/440IE (500MG CA), QD
     Dates: start: 20161024, end: 20170223
  15. XGEVA [Suspect]
     Active Substance: DENOSUMAB
     Indication: PRODUCT USED FOR UNKNOWN INDICATION
     Dosage: 120 MG (1.70 ML), Q3WK
     Route: 058
     Dates: start: 20161024
  16. DEXAMETHASONE. [Concomitant]
     Active Substance: DEXAMETHASONE
     Dosage: 4 MG, QD
     Route: 048
     Dates: start: 20161118, end: 20170223
  17. TAXOTERE [Concomitant]
     Active Substance: DOCETAXEL
     Indication: PROSTATE CANCER
  18. ALLOPURINOL. [Concomitant]
     Active Substance: ALLOPURINOL
     Dosage: 100 MG, QD
     Route: 048
     Dates: start: 20100528
  19. ATORVASTATIN [Concomitant]
     Active Substance: ATORVASTATIN
     Dosage: 40 MG, QD
     Route: 048
     Dates: start: 20170223
  20. PREDNISOLONE. [Concomitant]
     Active Substance: PREDNISOLONE
     Dosage: 30 MG, QD
     Route: 048
     Dates: start: 20170223
  21. FRAGMIN [Concomitant]
     Active Substance: DALTEPARIN SODIUM
     Dosage: 2500 IE/0.2ML
     Dates: start: 20170222
  22. SILODYX [Concomitant]
     Active Substance: SILODOSIN
     Dosage: 8 MG, QD
     Route: 048
     Dates: start: 20170126

REACTIONS (4)
  - Pneumonia [Unknown]
  - Diarrhoea [Recovering/Resolving]
  - Chronic obstructive pulmonary disease [Unknown]
  - Granulocytopenia [Unknown]

NARRATIVE: CASE EVENT DATE: 20161118
